FAERS Safety Report 23197242 (Version 3)
Quarter: 2024Q2

REPORT INFORMATION
  Report Type: Spontaneous
  Country: JP (occurrence: JP)
  Receive Date: 20231117
  Receipt Date: 20240522
  Transmission Date: 20240716
  Serious: Yes (Hospitalization, Other)
  Sender: FDA-Public Use
  Company Number: JP-Eisai-202309518_LEN-EC_P_1

PATIENT
  Age: 80 Year
  Sex: Female
  Weight: 54 kg

DRUGS (3)
  1. LENVIMA [Suspect]
     Active Substance: LENVATINIB
     Indication: Endometrial cancer
     Route: 048
     Dates: start: 20231010, end: 20231020
  2. LENVIMA [Suspect]
     Active Substance: LENVATINIB
     Route: 048
     Dates: start: 20231021, end: 20231026
  3. KEYTRUDA [Suspect]
     Active Substance: PEMBROLIZUMAB
     Indication: Endometrial cancer
     Dosage: DOSE AND FREQUENCY UNKNOWN
     Route: 041
     Dates: start: 20231010

REACTIONS (2)
  - Cholecystitis acute [Recovered/Resolved]
  - Immune-mediated pancytopenia [Recovered/Resolved]

NARRATIVE: CASE EVENT DATE: 20231026
